FAERS Safety Report 13941370 (Version 1)
Quarter: 2017Q3

REPORT INFORMATION
  Report Type: Spontaneous
  Country: US (occurrence: US)
  Receive Date: 20170906
  Receipt Date: 20170906
  Transmission Date: 20171127
  Serious: Yes (Hospitalization)
  Sender: FDA-Public Use
  Company Number: US-BEH-2017083287

PATIENT
  Sex: Female
  Weight: 79.37 kg

DRUGS (26)
  1. ZIAC                               /00821801/ [Concomitant]
     Active Substance: CEFIXIME
  2. PANTOPRAZOLE [Concomitant]
     Active Substance: PANTOPRAZOLE
  3. VITAMIN D3 [Concomitant]
     Active Substance: CHOLECALCIFEROL
  4. FOSAMAX [Concomitant]
     Active Substance: ALENDRONATE SODIUM
  5. ALENDRONATE [Concomitant]
     Active Substance: ALENDRONATE SODIUM
  6. SINGULAIR [Concomitant]
     Active Substance: MONTELUKAST SODIUM
  7. LOPERAMIDE [Concomitant]
     Active Substance: LOPERAMIDE
  8. CALCIUM MAGNESIUM                  /00591201/ [Concomitant]
  9. LAMISIL [Concomitant]
     Active Substance: TERBINAFINE HYDROCHLORIDE
  10. WELCHOL [Concomitant]
     Active Substance: COLESEVELAM HYDROCHLORIDE
  11. GEMFIBROZIL. [Concomitant]
     Active Substance: GEMFIBROZIL
  12. ALLOPURINOL. [Concomitant]
     Active Substance: ALLOPURINOL
  13. LEVOTHYROXINE. [Concomitant]
     Active Substance: LEVOTHYROXINE
  14. WARFARIN [Concomitant]
     Active Substance: WARFARIN
  15. LIOTHYRONINE [Concomitant]
     Active Substance: LIOTHYRONINE
  16. CETIRIZINE [Concomitant]
     Active Substance: CETIRIZINE HYDROCHLORIDE
  17. HIZENTRA [Suspect]
     Active Substance: HUMAN IMMUNOGLOBULIN G
     Indication: IMMUNODEFICIENCY COMMON VARIABLE
     Dosage: 16 G, QOW
     Route: 058
     Dates: start: 20120123
  18. SOMA [Concomitant]
     Active Substance: CARISOPRODOL
  19. SPIRONOLACTONE. [Concomitant]
     Active Substance: SPIRONOLACTONE
  20. HYDROXYZINE [Concomitant]
     Active Substance: HYDROXYZINE HYDROCHLORIDE
  21. HIZENTRA [Suspect]
     Active Substance: HUMAN IMMUNOGLOBULIN G
     Dosage: UNK
     Route: 058
  22. CLINDAMYCIN. [Concomitant]
     Active Substance: CLINDAMYCIN
  23. CEPHALEXIN                         /00145501/ [Concomitant]
     Active Substance: CEPHALEXIN
  24. METFORMIN [Concomitant]
     Active Substance: METFORMIN HYDROCHLORIDE
  25. NITROSTAT [Concomitant]
     Active Substance: NITROGLYCERIN
  26. TYLENOL [Concomitant]
     Active Substance: ACETAMINOPHEN

REACTIONS (1)
  - Cardiac disorder [Unknown]
